FAERS Safety Report 6698129-0 (Version None)
Quarter: 2010Q2

REPORT INFORMATION
  Report Type: 
  Country: None (occurrence: None)
  Receive Date: 20100427
  Receipt Date: 20100416
  Transmission Date: 20101027
  Serious: Yes (Hospitalization)
  Sender: FDA-Public Use
  Company Number: FR-PFIZER INC-2006110645

PATIENT
  Age: 45 Year
  Sex: Male

DRUGS (4)
  1. SUNITINIB MALATE [Suspect]
     Indication: RENAL CELL CARCINOMA
     Dosage: 50 MG, 1X/DAY
     Route: 048
     Dates: start: 20051226
  2. FENTANYL-100 [Concomitant]
     Route: 062
     Dates: start: 20051117
  3. ESOMEPRAZOLE [Concomitant]
     Route: 048
     Dates: start: 20060220
  4. LEVOTHYROXINE SODIUM [Concomitant]
     Route: 048
     Dates: start: 20060406

REACTIONS (1)
  - PERICARDIAL EFFUSION [None]
